FAERS Safety Report 5144558-6 (Version None)
Quarter: 2006Q4

REPORT INFORMATION
  Report Type: 
  Country: None (occurrence: None)
  Receive Date: 20061031
  Receipt Date: 20061019
  Transmission Date: 20070319
  Serious: Yes (Death, Hospitalization, Other)
  Sender: FDA-Public Use
  Company Number: 2005135105

PATIENT
  Age: 77 Year
  Sex: Male
  Weight: 74.8435 kg

DRUGS (3)
  1. NEURONTIN [Suspect]
     Indication: TRIGEMINAL NEURALGIA
     Dosage: 300 MG (100 MG, 3 IN 1 D), UNKNOWN
     Dates: start: 20010508, end: 20010501
  2. TEGRETOL [Suspect]
     Indication: ILL-DEFINED DISORDER
  3. VASOTEC [Suspect]
     Indication: ILL-DEFINED DISORDER
     Dosage: 10 MG (10 MG, 1 IN 1 D), UNKNOWN
     Dates: start: 19990202

REACTIONS (19)
  - APHTHOUS STOMATITIS [None]
  - ASTHENIA [None]
  - COMPLETED SUICIDE [None]
  - DEPRESSION [None]
  - DISORIENTATION [None]
  - DIZZINESS POSTURAL [None]
  - DRUG INEFFECTIVE [None]
  - DRUG INTOLERANCE [None]
  - DRUG LEVEL DECREASED [None]
  - FACIAL PAIN [None]
  - GUN SHOT WOUND [None]
  - HAEMORRHAGE [None]
  - HYPOTENSION [None]
  - MENTAL STATUS CHANGES [None]
  - RESPIRATORY TRACT INFECTION [None]
  - SOMNOLENCE [None]
  - SYNCOPE [None]
  - TEMPOROMANDIBULAR JOINT SYNDROME [None]
  - TRIGEMINAL NEURALGIA [None]
